FAERS Safety Report 6260373-4 (Version None)
Quarter: 2009Q3

REPORT INFORMATION
  Report Type: 
  Country: None (occurrence: None)
  Receive Date: 20090708
  Receipt Date: 20090702
  Transmission Date: 20100115
  Serious: Yes (Hospitalization)
  Sender: FDA-Public Use
  Company Number: FR-WATSON-2009-05127

PATIENT
  Age: 32 Year
  Sex: Male

DRUGS (2)
  1. ZOLPIDEM TARTRATE [Suspect]
     Indication: DRUG ABUSE
     Dosage: UNK
     Route: 013
  2. BUPRENORPHINE HCL [Suspect]
     Indication: DRUG ABUSE
     Route: 013

REACTIONS (2)
  - DRUG ADMINISTRATION ERROR [None]
  - PERIPHERAL ISCHAEMIA [None]
